FAERS Safety Report 5969155-1 (Version None)
Quarter: 2008Q4

REPORT INFORMATION
  Report Type: 
  Country: None (occurrence: None)
  Receive Date: 20081126
  Receipt Date: 20081117
  Transmission Date: 20090506
  Serious: Yes (Death, Other)
  Sender: FDA-Public Use
  Company Number: IT-WATSON-2008-06800

PATIENT
  Age: 29 Year
  Sex: Male

DRUGS (3)
  1. ETOPOSIDE [Suspect]
     Indication: TESTIS CANCER
     Dosage: 100 MG/M2, DAILY
     Route: 042
  2. BLEOMYCIN SULFATE [Suspect]
     Indication: TESTIS CANCER
     Dosage: 30 MG, DAYS 2, 8, 15
     Route: 042
  3. CISPLATIN [Suspect]
     Indication: TESTIS CANCER
     Dosage: 20 MG/M2, DAILY
     Route: 042

REACTIONS (2)
  - BRAIN NEOPLASM [None]
  - CHLOROMA [None]
